FAERS Safety Report 25636860 (Version 1)
Quarter: 2025Q3

REPORT INFORMATION
  Report Type: Spontaneous
  Country: EU (occurrence: EU)
  Receive Date: 20250804
  Receipt Date: 20250804
  Transmission Date: 20251020
  Serious: Yes (Death, Hospitalization, Other)
  Sender: BRISTOL-MYERS SQUIBB COMPANY
  Company Number: None

PATIENT
  Age: 89 Year
  Sex: Female

DRUGS (1)
  1. ELIQUIS [Suspect]
     Active Substance: APIXABAN
     Indication: Atrial fibrillation
     Dosage: DOSAGE: 1-0-1; THE DRUG WAS TAKEN CHRONICALLY
     Route: 048
     Dates: end: 20250702

REACTIONS (10)
  - Cholelithiasis [Fatal]
  - Jaundice [Fatal]
  - Inflammation [Fatal]
  - Hepatitis cholestatic [Fatal]
  - Lipase increased [Fatal]
  - Cholecystitis infective [Fatal]
  - Cholangitis infective [Fatal]
  - Antibody test positive [Fatal]
  - Haemorrhagic diathesis [Fatal]
  - Anaemia [Fatal]

NARRATIVE: CASE EVENT DATE: 20250702
